FAERS Safety Report 17256880 (Version 2)
Quarter: 2020Q1

REPORT INFORMATION
  Report Type: Report from Study
  Country: US (occurrence: US)
  Receive Date: 20200110
  Receipt Date: 20200131
  Transmission Date: 20200409
  Serious: Yes (Hospitalization, Other)
  Sender: FDA-Public Use
  Company Number: US-GILEAD-2019-0444802

PATIENT
  Age: 74 Year
  Sex: Female
  Weight: 77.4 kg

DRUGS (10)
  1. BENZONATATE. [Concomitant]
     Active Substance: BENZONATATE
  2. AMBRISENTAN [Suspect]
     Active Substance: AMBRISENTAN
     Indication: PULMONARY HYPERTENSION
     Dosage: 10 MG, QD
     Route: 048
     Dates: start: 201911
  3. IRON [Concomitant]
     Active Substance: IRON
  4. GERITOL [VITAMINS NOS] [Concomitant]
  5. MECLIZINE [MECLOZINE HYDROCHLORIDE] [Concomitant]
     Active Substance: MECLIZINE HYDROCHLORIDE
  6. MINERALS NOS;VITAMINS NOS [Concomitant]
     Active Substance: MINERALS\VITAMINS
  7. ASA [Concomitant]
     Active Substance: ASPIRIN
  8. LASIX [Concomitant]
     Active Substance: FUROSEMIDE
  9. AZITHROMYCIN ANHYDROUS. [Concomitant]
     Active Substance: AZITHROMYCIN ANHYDROUS
  10. TADALAFIL. [Concomitant]
     Active Substance: TADALAFIL

REACTIONS (2)
  - Cardiac arrest [Recovered/Resolved]
  - Syncope [Recovered/Resolved]

NARRATIVE: CASE EVENT DATE: 20191225
